FAERS Safety Report 10716160 (Version 1)
Quarter: 2015Q1

REPORT INFORMATION
  Report Type: Spontaneous
  Country: US (occurrence: None)
  Receive Date: 20150115
  Receipt Date: 20150115
  Transmission Date: 20150721
  Serious: No
  Sender: FDA-Public Use
  Company Number: None

PATIENT
  Age: 68 Year
  Sex: Female

DRUGS (19)
  1. PREGNENOLONE [Concomitant]
     Active Substance: PREGNENOLONE
  2. VITE [Concomitant]
  3. PROGESTERONE. [Concomitant]
     Active Substance: PROGESTERONE
  4. CLONAPIN [Concomitant]
     Active Substance: CLONAZEPAM
  5. CORTISOL MANAGER [Concomitant]
  6. GLUTATHIONE [Concomitant]
     Active Substance: GLUTATHIONE
  7. FLOVENT [Concomitant]
     Active Substance: FLUTICASONE PROPIONATE
  8. SUBLINGUAL INHALANT ANTIGEN [Concomitant]
     Active Substance: ALLERGENIC EXTRACTS
  9. ASPIRIN. [Concomitant]
     Active Substance: ASPIRIN
  10. CYTOZYME-AD [Concomitant]
  11. SUBLINGUAL INHALANT ANTIGEN SYRUM COMPOUN D [Suspect]
     Active Substance: ALLERGENIC EXTRACTS
     Indication: IMMUNE TOLERANCE INDUCTION
     Dosage: 1 PUMP 3X DAILY, BY MOUTH UNDER TONGUE
     Route: 048
     Dates: start: 20141106
  12. LEVOTHYROXINE [Concomitant]
     Active Substance: LEVOTHYROXINE
  13. BIOTIN [Concomitant]
     Active Substance: BIOTIN
  14. ZINC [Concomitant]
     Active Substance: ZINC\ZINC CHLORIDE
  15. L-TRYPTOPHAN [Concomitant]
     Active Substance: TRYPTOPHAN
  16. DHEA [Concomitant]
     Active Substance: DEHYDROEPIANDROSTERONE-3-SULFATE SODIUM
  17. CENTINOL [Concomitant]
  18. N-ACETYL-L-CYSTEINE [Concomitant]
  19. MELATONIN [Concomitant]
     Active Substance: MELATONIN

REACTIONS (3)
  - Headache [None]
  - Nausea [None]
  - No therapeutic response [None]

NARRATIVE: CASE EVENT DATE: 20141106
